FAERS Safety Report 5956788-1 (Version None)
Quarter: 2008Q4

REPORT INFORMATION
  Report Type: 
  Country: None (occurrence: None)
  Receive Date: 20081118
  Receipt Date: 20081111
  Transmission Date: 20090506
  Serious: Yes (Life-Threatening, Hospitalization)
  Sender: FDA-Public Use
  Company Number: JP-ASTRAZENECA-2008AC02934

PATIENT
  Age: 70 Year
  Sex: Male
  Weight: 55 kg

DRUGS (7)
  1. PROPOFOL [Suspect]
     Indication: GENERAL ANAESTHESIA
     Route: 042
  2. FENTANYL [Suspect]
     Indication: GENERAL ANAESTHESIA
     Route: 065
  3. VECURONIUM BROMIDE [Suspect]
     Indication: GENERAL ANAESTHESIA
     Route: 065
  4. SEVOFLURANE [Suspect]
     Indication: ANAESTHESIA
     Route: 065
  5. CILOSTAZOL [Concomitant]
  6. NICORANDIL [Concomitant]
     Route: 048
  7. AMLODIPINE [Concomitant]
     Indication: HYPERTENSION
     Route: 048

REACTIONS (1)
  - CARDIAC FAILURE CONGESTIVE [None]
